FAERS Safety Report 6943657-3 (Version None)
Quarter: 2010Q3

REPORT INFORMATION
  Report Type: 
  Country: None (occurrence: None)
  Receive Date: 20100826
  Receipt Date: 20100824
  Transmission Date: 20110219
  Serious: Yes (Hospitalization)
  Sender: FDA-Public Use
  Company Number: PHHO2009KR15295

PATIENT
  Sex: Male
  Weight: 71 kg

DRUGS (5)
  1. ACLASTA/ZOLEDRONATE T29581+A+ [Suspect]
     Indication: OSTEONECROSIS
     Dosage: 5MG ONCE YEARLY
     Route: 042
     Dates: start: 20090506
  2. CELECOXIB [Concomitant]
     Indication: OSTEOARTHRITIS
     Dosage: UNK
  3. SULFASALAZINE [Concomitant]
     Dosage: UNK
  4. CALCIUM [Concomitant]
     Dosage: UNK
  5. VITAMIN D [Concomitant]
     Dosage: UNK

REACTIONS (6)
  - DISEASE PROGRESSION [None]
  - FALL [None]
  - OSTEONECROSIS [None]
  - PAIN [None]
  - SURGERY [None]
  - SYNCOPE [None]
